FAERS Safety Report 10932301 (Version 1)
Quarter: 2015Q1

REPORT INFORMATION
  Report Type: Spontaneous
  Country: US (occurrence: None)
  Receive Date: 20150319
  Receipt Date: 20150319
  Transmission Date: 20150721
  Serious: Yes (Life-Threatening, Hospitalization, Disabling)
  Sender: FDA-Public Use
  Company Number: None

PATIENT
  Age: 35 Year
  Weight: 70.31 kg

DRUGS (3)
  1. GABAPENTIN. [Suspect]
     Active Substance: GABAPENTIN
     Indication: NEURALGIA
     Route: 048
     Dates: start: 20150203, end: 20150318
  2. DAPTOMYCIN. [Suspect]
     Active Substance: DAPTOMYCIN
     Indication: INFECTION
     Route: 042
     Dates: start: 20090110, end: 20150212
  3. POWER PORT [Concomitant]

REACTIONS (14)
  - Facial paresis [None]
  - Visual impairment [None]
  - Crying [None]
  - Dysarthria [None]
  - Sensory disturbance [None]
  - Dizziness [None]
  - Vomiting [None]
  - Confusional state [None]
  - Hallucination [None]
  - Nervous system disorder [None]
  - Tongue movement disturbance [None]
  - Hearing impaired [None]
  - Hemiparesis [None]
  - Balance disorder [None]

NARRATIVE: CASE EVENT DATE: 20150203
